FAERS Safety Report 16608571 (Version 3)
Quarter: 2020Q4

REPORT INFORMATION
  Report Type: Spontaneous
  Country: US (occurrence: US)
  Receive Date: 20190722
  Receipt Date: 20201126
  Transmission Date: 20210113
  Serious: No
  Sender: FDA-Public Use
  Company Number: US-PFIZER INC-2019310376

PATIENT
  Age: 58 Year
  Sex: Female
  Weight: 81.63 kg

DRUGS (14)
  1. URSODIOL. [Concomitant]
     Active Substance: URSODIOL
     Dosage: 1200 MG, UNK (300 MG 4 CAPS)
     Dates: start: 2016
  2. CALCIUM + MAGNESIUM + ZINK [Concomitant]
     Dosage: UNK
  3. ROSUVASTATIN. [Concomitant]
     Active Substance: ROSUVASTATIN
     Dosage: 10 MG, 1X/DAY
     Dates: start: 201901
  4. FLAXSEED [Concomitant]
     Active Substance: FLAX SEED
     Dosage: UNK
  5. XELJANZ XR [Suspect]
     Active Substance: TOFACITINIB CITRATE
     Indication: RHEUMATOID ARTHRITIS
     Dosage: 11 MG, DAILY
     Route: 048
     Dates: start: 20190612
  6. XIIDRA [Concomitant]
     Active Substance: LIFITEGRAST
     Dosage: UNK
  7. VIT D [Concomitant]
     Active Substance: VITAMIN D NOS
     Dosage: UNK
  8. BIOTIN [Concomitant]
     Active Substance: BIOTIN
     Dosage: UNK
  9. HYDROXYCHLOROQUINE [Concomitant]
     Active Substance: HYDROXYCHLOROQUINE
     Dosage: 200 MG, UNK
     Dates: start: 2015
  10. TURMERIC [CURCUMA LONGA] [Concomitant]
     Active Substance: HERBALS\TURMERIC
     Dosage: UNK
  11. AMLODIPINE [Concomitant]
     Active Substance: AMLODIPINE BESYLATE
     Dosage: 2.5 MG, UNK
     Dates: start: 2016
  12. VITAMIN C [Concomitant]
     Active Substance: ASCORBIC ACID
     Dosage: UNK
  13. OMEGA 3 [FISH OIL] [Concomitant]
     Active Substance: FISH OIL
     Dosage: UNK
  14. FOLIC ACID. [Concomitant]
     Active Substance: FOLIC ACID
     Dosage: UNK

REACTIONS (7)
  - Drug hypersensitivity [Unknown]
  - Herpes zoster [Unknown]
  - Oropharyngeal pain [Recovered/Resolved]
  - Condition aggravated [Not Recovered/Not Resolved]
  - Fatigue [Recovering/Resolving]
  - Sinus disorder [Not Recovered/Not Resolved]
  - Throat irritation [Recovered/Resolved]

NARRATIVE: CASE EVENT DATE: 20190622
